FAERS Safety Report 19626011 (Version 1)
Quarter: 2021Q3

REPORT INFORMATION
  Report Type: Spontaneous
  Country: US (occurrence: US)
  Receive Date: 20210728
  Receipt Date: 20210728
  Transmission Date: 20211014
  Serious: Yes (Hospitalization)
  Sender: FDA-Public Use
  Company Number: None

PATIENT
  Age: 83 Year
  Sex: Female
  Weight: 96.4 kg

DRUGS (1)
  1. VEKLURY [Suspect]
     Active Substance: REMDESIVIR
     Indication: COVID-19
     Dosage: ?          OTHER FREQUENCY:ONCE;?
     Route: 042
     Dates: start: 20210728, end: 20210728

REACTIONS (5)
  - Oxygen saturation decreased [None]
  - Hypertension [None]
  - Dyspnoea [None]
  - Tachycardia [None]
  - Feeling hot [None]

NARRATIVE: CASE EVENT DATE: 20210728
